FAERS Safety Report 4430772-1 (Version None)
Quarter: 2004Q3

REPORT INFORMATION
  Report Type: 
  Country: None (occurrence: None)
  Receive Date: 20040818
  Receipt Date: 20040806
  Transmission Date: 20050211
  Serious: Yes (Disabling)
  Sender: FDA-Public Use
  Company Number: 208306

PATIENT
  Age: 77 Year
  Sex: Female

DRUGS (4)
  1. MABTHERA (RITUXIMAB) CONC FOR SOLUTION FOR INFUSION [Suspect]
     Indication: NON-HODGKIN'S LYMPHOMA
     Dosage: 600 MG, Q3M, INTRAVENOUS
     Route: 042
     Dates: start: 20031111, end: 20040210
  2. CHLORAMBUCIL (CHLORAMBUCIL) [Suspect]
     Indication: NON-HODGKIN'S LYMPHOMA
     Dosage: 10 MG, QD, ORAL
     Route: 048
     Dates: start: 20030101, end: 20030101
  3. ZOLOFT [Concomitant]
  4. KONAKION [Concomitant]

REACTIONS (4)
  - CONDITION AGGRAVATED [None]
  - HEPATITIS C [None]
  - HEPATOCELLULAR DAMAGE [None]
  - THERAPEUTIC AGENT TOXICITY [None]
